FAERS Safety Report 9218080 (Version 2)
Quarter: 2013Q4

REPORT INFORMATION
  Report Type: Spontaneous
  Country: US (occurrence: US)
  Receive Date: 20130408
  Receipt Date: 20131001
  Transmission Date: 20140711
  Serious: Yes (Hospitalization)
  Sender: FDA-Public Use
  Company Number: US-GLAXOSMITHKLINE-A1019134A

PATIENT
  Age: 37 Year
  Sex: Female
  Weight: 100 kg

DRUGS (18)
  1. RYTHMOL [Concomitant]
  2. VIMPAT [Concomitant]
  3. LISINOPRIL [Concomitant]
  4. PROCHLORPERAZINE [Concomitant]
  5. ZOFRAN [Concomitant]
  6. VITAMIN E [Concomitant]
  7. PRILOSEC [Concomitant]
  8. L-LYSINE [Concomitant]
  9. KEPPRA [Concomitant]
  10. VITAMIN B12 [Concomitant]
  11. MULTIVITAMIN [Concomitant]
  12. AVASTIN (BEVACIZUMAB) [Concomitant]
  13. VITAMIN D3 [Concomitant]
  14. HERCEPTIN [Concomitant]
  15. TYKERB [Suspect]
     Indication: BREAST CANCER
     Dosage: 1000MG PER DAY
     Route: 048
  16. XANAX [Concomitant]
  17. LOPRESSOR [Concomitant]
  18. TYLENOL #3 W CODEINE [Concomitant]

REACTIONS (4)
  - Dehydration [Unknown]
  - Diarrhoea [Not Recovered/Not Resolved]
  - Dry skin [Unknown]
  - Dizziness [Unknown]
